FAERS Safety Report 11622769 (Version 1)
Quarter: 2015Q4

REPORT INFORMATION
  Report Type: Spontaneous
  Country: US (occurrence: None)
  Receive Date: 20151009
  Receipt Date: 20151009
  Transmission Date: 20160304
  Serious: Yes (Hospitalization)
  Sender: FDA-Public Use
  Company Number: None

PATIENT
  Age: 48 Year
  Sex: Female
  Weight: 73.94 kg

DRUGS (4)
  1. IRON PILLS [Concomitant]
     Active Substance: IRON
  2. HYDROCHLOROZIDE [Concomitant]
  3. MEDROXYPROGESTERONE 10 MG [Suspect]
     Active Substance: MEDROXYPROGESTERONE
     Indication: UTERINE HAEMORRHAGE
     Dosage: 10-14 PILLS ONCE DAILY
     Dates: start: 20150923, end: 20151002
  4. MULTIVITAMINS [Concomitant]
     Active Substance: VITAMINS

REACTIONS (2)
  - Haemorrhage [None]
  - Uterine haemorrhage [None]

NARRATIVE: CASE EVENT DATE: 20151006
